FAERS Safety Report 4978401-2 (Version None)
Quarter: 2006Q2

REPORT INFORMATION
  Report Type: 
  Country: None (occurrence: None)
  Receive Date: 20060417
  Receipt Date: 20060330
  Transmission Date: 20061013
  Serious: Yes (Hospitalization)
  Sender: FDA-Public Use
  Company Number: 8016170

PATIENT
  Age: 19 Year
  Sex: Female
  Weight: 60 kg

DRUGS (4)
  1. KEPPRA [Suspect]
     Indication: EPILEPSY
     Dosage: 750 MG /D PO
     Route: 048
     Dates: start: 20011101, end: 20020101
  2. TOPAMAX [Suspect]
     Indication: EPILEPSY
     Dosage: 100 MG 2/D
     Dates: start: 19990101, end: 20000101
  3. TOPAMAX [Suspect]
     Indication: EPILEPSY
     Dosage: 200 MG 2/D
     Dates: start: 20000101, end: 20011101
  4. TOPAMAX [Suspect]
     Indication: EPILEPSY
     Dosage: 500 MG /D
     Dates: start: 20011101

REACTIONS (7)
  - ACNE FULMINANS [None]
  - APPENDICITIS [None]
  - COMEDONE [None]
  - CONDITION AGGRAVATED [None]
  - LYMPHADENOPATHY [None]
  - MENTAL IMPAIRMENT [None]
  - OVARIAN CYST [None]
